FAERS Safety Report 9459524 (Version 7)
Quarter: 2014Q1

REPORT INFORMATION
  Report Type: Spontaneous
  Country: US (occurrence: US)
  Receive Date: 20130815
  Receipt Date: 20140110
  Transmission Date: 20141002
  Serious: No
  Sender: FDA-Public Use
  Company Number: US-PFIZER INC-2013234998

PATIENT
  Age: 73 Year
  Sex: Male
  Weight: 69.84 kg

DRUGS (13)
  1. SUTENT [Suspect]
     Indication: RENAL CANCER
     Dosage: 50 MG, 4 WEEKS ON AND 2 OFF (1-28 DAYS)
     Route: 048
     Dates: start: 20130720
  2. SUTENT [Suspect]
     Dosage: 25 MG, UNK
  3. ACETYLSALICYLIC ACID [Concomitant]
     Dosage: UNK
  4. FENTANYL [Concomitant]
     Indication: PAIN
     Dosage: 100 UG, (EVERY 72 HOUS)
     Dates: start: 201305
  5. GABAPENTIN [Concomitant]
     Dosage: UNK
  6. GLIPIZIDE [Concomitant]
     Dosage: UNK
  7. HYDROCODONE [Concomitant]
     Dosage: UNK
  8. LISINOPRIL [Concomitant]
     Dosage: UNK
  9. METHOCARBAMOL [Concomitant]
     Dosage: UNK
  10. OXYCODONE [Concomitant]
     Indication: PAIN
     Dosage: 10 MG, 4X/DAY (EVERY 6 HRS)
     Route: 048
     Dates: start: 201305
  11. SIMVASTATIN [Concomitant]
     Dosage: UNK
  12. FLOMAX [Concomitant]
     Dosage: UNK
  13. ZANTAC [Concomitant]
     Dosage: UNK

REACTIONS (15)
  - Oral pain [Not Recovered/Not Resolved]
  - Dysgeusia [Recovering/Resolving]
  - Rash [Unknown]
  - Hiccups [Unknown]
  - Depression [Unknown]
  - Decreased appetite [Recovering/Resolving]
  - Weight decreased [Unknown]
  - Mucosal inflammation [Recovering/Resolving]
  - Disease progression [Unknown]
  - Renal cancer [Unknown]
  - Pain [Not Recovered/Not Resolved]
  - Hyperaesthesia [Unknown]
  - Contusion [Unknown]
  - Memory impairment [Unknown]
  - Cognitive disorder [Unknown]
